FAERS Safety Report 5445752-7 (Version None)
Quarter: 2007Q3

REPORT INFORMATION
  Report Type: 
  Country: None (occurrence: None)
  Receive Date: 20070904
  Receipt Date: 20070822
  Transmission Date: 20080115
  Serious: Yes (Hospitalization)
  Sender: FDA-Public Use
  Company Number: 2007BI016851

PATIENT
  Age: 45 Year
  Sex: Male
  Weight: 79.3795 kg

DRUGS (3)
  1. NATALIZUMAB [Suspect]
     Dosage: 300 MG; QM; IV
     Route: 042
     Dates: start: 20070409
  2. ULTRAM [Concomitant]
  3. PROVIGIL [Concomitant]

REACTIONS (9)
  - ARTERIOSCLEROSIS [None]
  - ASTHENIA [None]
  - DIZZINESS [None]
  - ERYTHEMA [None]
  - HERPES ZOSTER [None]
  - NAUSEA [None]
  - PRESYNCOPE [None]
  - RASH [None]
  - TRICUSPID VALVE INCOMPETENCE [None]
